FAERS Safety Report 11084620 (Version 2)
Quarter: 2015Q2

REPORT INFORMATION
  Report Type: Spontaneous
  Country: US (occurrence: US)
  Receive Date: 20150503
  Receipt Date: 20150525
  Transmission Date: 20150821
  Serious: Yes (Other)
  Sender: FDA-Public Use
  Company Number: US-JNJFOC-20150400227

PATIENT
  Age: 86 Year
  Sex: Female
  Weight: 54.43 kg

DRUGS (6)
  1. XARELTO [Suspect]
     Active Substance: RIVAROXABAN
     Indication: THROMBOLYSIS
     Route: 048
     Dates: start: 20150316
  2. XARELTO [Suspect]
     Active Substance: RIVAROXABAN
     Indication: THROMBOLYSIS
     Route: 048
     Dates: start: 20150312, end: 20150315
  3. OXYBUTYNIN [Concomitant]
     Active Substance: OXYBUTYNIN
     Indication: POLLAKIURIA
     Dosage: AT BEDTIME
     Route: 065
  4. PRILOSEC [Concomitant]
     Active Substance: OMEPRAZOLE MAGNESIUM
     Indication: DYSPEPSIA
     Dosage: AT BEDTIME
     Route: 065
  5. BABY ASPIRIN [Concomitant]
     Active Substance: ASPIRIN
     Route: 065
  6. CITALOPRAM [Concomitant]
     Active Substance: CITALOPRAM HYDROBROMIDE
     Indication: DEPRESSION
     Route: 065

REACTIONS (2)
  - Vaginal haemorrhage [Recovered/Resolved]
  - Product use issue [Unknown]

NARRATIVE: CASE EVENT DATE: 20150312
